FAERS Safety Report 15999697 (Version 1)
Quarter: 2019Q1

REPORT INFORMATION
  Report Type: Report from Study
  Country: None (occurrence: US)
  Receive Date: 20190225
  Receipt Date: 20190225
  Transmission Date: 20190418
  Serious: Yes (Other)
  Sender: FDA-Public Use
  Company Number: US-ABBVIE-19S-163-2675171-00

PATIENT
  Sex: Male
  Weight: 88.08 kg

DRUGS (4)
  1. OMEPRAZOLE. [Concomitant]
     Active Substance: OMEPRAZOLE
     Indication: GASTROOESOPHAGEAL REFLUX DISEASE
     Route: 065
  2. NEUPRO [Concomitant]
     Active Substance: ROTIGOTINE
     Indication: PARKINSON^S DISEASE
     Route: 065
  3. DUOPA [Suspect]
     Active Substance: CARBIDOPA\LEVODOPA
     Indication: PARKINSON^S DISEASE
     Route: 050
     Dates: start: 2015
  4. VITAMIN D [Concomitant]
     Active Substance: CHOLECALCIFEROL
     Indication: SUPPLEMENTATION THERAPY
     Route: 065

REACTIONS (3)
  - Malignant melanoma in situ [Recovered/Resolved]
  - Squamous cell carcinoma of skin [Recovered/Resolved]
  - Basal cell carcinoma [Recovered/Resolved]
